FAERS Safety Report 10202110 (Version 1)
Quarter: 2014Q2

REPORT INFORMATION
  Report Type: Spontaneous
  Country: US (occurrence: US)
  Receive Date: 20140528
  Receipt Date: 20140528
  Transmission Date: 20141212
  Serious: Yes (Other)
  Sender: FDA-Public Use
  Company Number: US-GLAXOSMITHKLINE-A1074624A

PATIENT
  Sex: Female

DRUGS (21)
  1. LOVAZA [Suspect]
     Indication: PRODUCT USED FOR UNKNOWN INDICATION
     Dosage: 1G UNKNOWN
     Route: 065
     Dates: start: 20111215
  2. PENICILLIN [Suspect]
     Indication: PRODUCT USED FOR UNKNOWN INDICATION
     Route: 065
  3. ATORVASTATIN [Concomitant]
  4. BABY ASPIRIN [Concomitant]
  5. B COMPLEX [Concomitant]
  6. CALCIUM [Concomitant]
  7. COSOPT [Concomitant]
  8. DILTIAZEM [Concomitant]
  9. ENALAPRIL [Concomitant]
  10. IRON [Concomitant]
  11. LEVEMIR [Concomitant]
  12. LEVOXYL [Concomitant]
  13. LISINOPRIL [Concomitant]
  14. LUMIGAN [Concomitant]
  15. METOPROLOL [Concomitant]
  16. NEURONTIN [Concomitant]
  17. NIASPAN [Concomitant]
  18. NOVOLOG [Concomitant]
  19. TRICOR [Concomitant]
  20. VITAMIN D [Concomitant]
  21. ZOCOR [Concomitant]

REACTIONS (3)
  - Gastric cancer [Unknown]
  - Spinal operation [Unknown]
  - Drug hypersensitivity [Unknown]
